FAERS Safety Report 14572495 (Version 2)
Quarter: 2018Q2

REPORT INFORMATION
  Report Type: Spontaneous
  Country: JP (occurrence: JP)
  Receive Date: 20180226
  Receipt Date: 20180409
  Transmission Date: 20180711
  Serious: Yes (Death, Hospitalization)
  Sender: FDA-Public Use
  Company Number: JP-ACTELION-A-CH2017-153617

PATIENT
  Age: 66 Year
  Sex: Male
  Weight: 64 kg

DRUGS (20)
  1. UPTRAVI [Suspect]
     Active Substance: SELEXIPAG
     Dosage: 0.8 MG, BID
     Route: 048
     Dates: start: 20170428, end: 20170509
  2. UPTRAVI [Suspect]
     Active Substance: SELEXIPAG
     Dosage: 1.2 MG, BID
     Route: 048
     Dates: start: 20170524, end: 20170620
  3. UPTRAVI [Suspect]
     Active Substance: SELEXIPAG
     Dosage: 0.8 MG, BID
     Route: 048
     Dates: start: 20170621, end: 20180211
  4. MAINTATE [Concomitant]
     Active Substance: BISOPROLOL FUMARATE
     Indication: ATRIAL FIBRILLATION
     Dosage: 5 MG, QD
     Route: 048
     Dates: start: 20090115
  5. FERROMIA [Concomitant]
     Active Substance: SODIUM FERROUS CITRATE
     Indication: IRON DEFICIENCY ANAEMIA
     Dosage: 100 MG, QD
     Route: 048
     Dates: start: 20160708
  6. ADCIRCA [Concomitant]
     Active Substance: TADALAFIL
     Indication: PULMONARY ARTERIAL HYPERTENSION
     Dosage: 20 MG, QD
     Route: 048
     Dates: start: 20161222
  7. TAKEPRON [Concomitant]
     Active Substance: LANSOPRAZOLE
     Indication: PRODUCT USED FOR UNKNOWN INDICATION
     Dosage: 15 MG, UNK
     Route: 048
     Dates: start: 20160116
  8. TANADOPA [Concomitant]
     Active Substance: DOCARPAMINE
     Indication: RIGHT VENTRICULAR FAILURE
     Dosage: 3 G, QD
     Route: 048
     Dates: start: 20160121
  9. LASIX [Concomitant]
     Active Substance: FUROSEMIDE
     Dosage: 120 UNK, UNK
     Route: 042
     Dates: end: 20170816
  10. DIART [Concomitant]
     Active Substance: AZOSEMIDE
     Indication: RIGHT VENTRICULAR FAILURE
     Dosage: 90 MG, QD
     Route: 048
     Dates: start: 20160114
  11. FEBURIC [Concomitant]
     Active Substance: FEBUXOSTAT
     Indication: HYPERURICAEMIA
     Dosage: 40 MG, QD
     Route: 048
     Dates: start: 20140913
  12. UPTRAVI [Suspect]
     Active Substance: SELEXIPAG
     Indication: PULMONARY ARTERIAL HYPERTENSION
     Dosage: 0.2 MG, BID
     Route: 048
     Dates: start: 20170317, end: 20170330
  13. UPTRAVI [Suspect]
     Active Substance: SELEXIPAG
     Dosage: 0.6 MG, BID
     Route: 048
     Dates: start: 20170412, end: 20170427
  14. LASIX [Concomitant]
     Active Substance: FUROSEMIDE
     Indication: CARDIAC FAILURE
     Dosage: 20 MG, QD
     Route: 042
     Dates: start: 20170629
  15. UPTRAVI [Suspect]
     Active Substance: SELEXIPAG
     Dosage: 1.0 MG, BID
     Route: 048
     Dates: start: 20170510, end: 20170523
  16. MILRILA [Concomitant]
     Active Substance: MILRINONE
     Indication: RIGHT VENTRICULAR FAILURE
     Dosage: 10 MG, QD
     Route: 042
     Dates: start: 20170628
  17. MILRILA [Concomitant]
     Active Substance: MILRINONE
     Dosage: 20 MG, QD
     Route: 042
     Dates: end: 20170810
  18. SAMSCA [Concomitant]
     Active Substance: TOLVAPTAN
     Indication: RIGHT VENTRICULAR FAILURE
     Dosage: 3.75 MG, OD
     Route: 048
     Dates: start: 20160114
  19. SULTAMUGIN [Concomitant]
     Indication: PRODUCT USED FOR UNKNOWN INDICATION
     Dosage: 2 G, QD
     Route: 042
     Dates: start: 20170630, end: 20170713
  20. UPTRAVI [Suspect]
     Active Substance: SELEXIPAG
     Dosage: 0.4 MG, BID
     Route: 048
     Dates: start: 20170331, end: 20170411

REACTIONS (6)
  - Diarrhoea [Recovered/Resolved]
  - Ascites [Not Recovered/Not Resolved]
  - Hepatitis C [Fatal]
  - Hot flush [Recovered/Resolved]
  - Pneumonia [Recovered/Resolved]
  - Abdominal cavity drainage [Unknown]

NARRATIVE: CASE EVENT DATE: 20170412
